FAERS Safety Report 4485858-2 (Version None)
Quarter: 2004Q4

REPORT INFORMATION
  Report Type: 
  Country: None (occurrence: None)
  Receive Date: 20041022
  Receipt Date: 20041011
  Transmission Date: 20050328
  Serious: Yes (Hospitalization)
  Sender: FDA-Public Use
  Company Number: 2004UW18681

PATIENT
  Age: 75 Year
  Sex: Female

DRUGS (3)
  1. IRESSA [Suspect]
     Indication: PANCREATIC CARCINOMA
     Dosage: 250 MG QD PO
     Route: 048
     Dates: start: 20040802, end: 20040828
  2. XELODA [Suspect]
     Indication: PANCREATIC CARCINOMA
     Dosage: 825 MG/M2 Q12H
     Dates: start: 20040802, end: 20040828
  3. RADIATION [Suspect]
     Dates: start: 20040828, end: 20040827

REACTIONS (8)
  - ATRIAL FIBRILLATION [None]
  - COUGH [None]
  - DEHYDRATION [None]
  - DIARRHOEA [None]
  - DISEASE PROGRESSION [None]
  - HYPOTENSION [None]
  - NAUSEA [None]
  - VOMITING [None]
